FAERS Safety Report 6662395-8 (Version None)
Quarter: 2010Q1

REPORT INFORMATION
  Report Type: 
  Country: None (occurrence: None)
  Receive Date: 20100331
  Receipt Date: 20100318
  Transmission Date: 20100710
  Serious: Yes (Death, Hospitalization, Other)
  Sender: FDA-Public Use
  Company Number: US-ELI_LILLY_AND_COMPANY-US201003005778

PATIENT
  Sex: Female

DRUGS (8)
  1. ZYPREXA [Suspect]
     Indication: BIPOLAR DISORDER
     Dosage: 2.5 MG, DAILY (1/D)
     Dates: start: 20030101
  2. MIRTAZAPINE [Concomitant]
  3. VERAPAMIL [Concomitant]
  4. BUMEX [Concomitant]
  5. LESCOL [Concomitant]
  6. FLURAZEPAM [Concomitant]
  7. HYDROCODONE [Concomitant]
  8. COREG [Concomitant]

REACTIONS (2)
  - DYSPNOEA [None]
  - RENAL FAILURE [None]
